FAERS Safety Report 8054526-2 (Version None)
Quarter: 2012Q1

REPORT INFORMATION
  Report Type: 
  Country: None (occurrence: None)
  Receive Date: 20120119
  Receipt Date: 20120105
  Transmission Date: 20120608
  Serious: Yes (Hospitalization, Other)
  Sender: FDA-Public Use
  Company Number: JP-BRISTOL-MYERS SQUIBB COMPANY-16329989

PATIENT
  Age: 68 Year
  Sex: Male

DRUGS (9)
  1. LANSOPRAZOLE [Concomitant]
     Route: 048
  2. BARACLUDE [Suspect]
     Indication: HEPATIC CIRRHOSIS
     Route: 048
  3. CODEINE SUL TAB [Concomitant]
     Route: 048
  4. ROHYPNOL [Concomitant]
  5. LORAZEPAM [Concomitant]
     Route: 048
  6. LIVACT [Concomitant]
     Route: 048
  7. LASIX [Concomitant]
  8. ALDACTONE [Concomitant]
     Route: 048
  9. NAPROXEN [Concomitant]
     Route: 048

REACTIONS (3)
  - GLOMERULAR FILTRATION RATE DECREASED [None]
  - PLEURAL EFFUSION [None]
  - DISSEMINATED INTRAVASCULAR COAGULATION [None]
